FAERS Safety Report 15654048 (Version 1)
Quarter: 2018Q4

REPORT INFORMATION
  Report Type: Spontaneous
  Country: US (occurrence: US)
  Receive Date: 20181124
  Receipt Date: 20181124
  Transmission Date: 20190205
  Serious: Yes (Disabling)
  Sender: FDA-Public Use
  Company Number: None

PATIENT
  Age: 5 Year
  Sex: Female

DRUGS (3)
  1. ALBUTEROL. [Concomitant]
     Active Substance: ALBUTEROL
  2. EPINEPHRINE. [Concomitant]
     Active Substance: EPINEPHRINE
  3. SINGULAIR [Suspect]
     Active Substance: MONTELUKAST SODIUM
     Indication: ASTHMA
     Route: 048
     Dates: start: 20091124, end: 20091223

REACTIONS (4)
  - Intentional self-injury [None]
  - Dissociation [None]
  - Aggression [None]
  - Memory impairment [None]

NARRATIVE: CASE EVENT DATE: 20091130
